FAERS Safety Report 15311010 (Version 1)
Quarter: 2018Q3

REPORT INFORMATION
  Report Type: Spontaneous
  Country: US (occurrence: US)
  Receive Date: 20180814
  Receipt Date: 20180814
  Transmission Date: 20181010
  Serious: Yes (Other)
  Sender: FDA-Public Use
  Company Number: None

PATIENT
  Age: 64 Year
  Sex: Female
  Weight: 74.25 kg

DRUGS (12)
  1. LIOTHYRONINE [Concomitant]
     Active Substance: LIOTHYRONINE
  2. GREEN TEA EXTRACT [Concomitant]
  3. DHEA [Concomitant]
     Active Substance: PRASTERONE
  4. VITAMIN D [Concomitant]
     Active Substance: CHOLECALCIFEROL
  5. COQ10 [Concomitant]
     Active Substance: UBIDECARENONE
  6. CALM(MAGNESIUM) [Concomitant]
  7. MULTI VIT [Concomitant]
  8. TURMERIC [Concomitant]
     Active Substance: HERBALS\TURMERIC
  9. NALTREXONE [Suspect]
     Active Substance: NALTREXONE
     Indication: AUTOIMMUNE THYROIDITIS
     Dosage: ?          QUANTITY:30 CAPSULE(S);?
     Route: 048
     Dates: start: 20180617, end: 20180814
  10. NALTREXONE [Suspect]
     Active Substance: NALTREXONE
     Indication: HYPOTHYROIDISM
     Dosage: ?          QUANTITY:30 CAPSULE(S);?
     Route: 048
     Dates: start: 20180617, end: 20180814
  11. VIT B [Concomitant]
     Active Substance: VITAMIN B
  12. MULTI MINERAL [Concomitant]

REACTIONS (6)
  - Muscle spasms [None]
  - Depression [None]
  - Dizziness [None]
  - Fatigue [None]
  - Arthritis [None]
  - Insomnia [None]

NARRATIVE: CASE EVENT DATE: 20180730
